FAERS Safety Report 7656781-7 (Version None)
Quarter: 2011Q3

REPORT INFORMATION
  Report Type: 
  Country: None (occurrence: None)
  Receive Date: 20110804
  Receipt Date: 20110727
  Transmission Date: 20111222
  Serious: Yes (Death)
  Sender: FDA-Public Use
  Company Number: PHHY2011JP69749

PATIENT
  Age: 59 Year
  Sex: Female

DRUGS (4)
  1. CISPLATIN [Suspect]
     Indication: SQUAMOUS CELL CARCINOMA
  2. DOCETAXEL [Suspect]
     Indication: SQUAMOUS CELL CARCINOMA
  3. RADIOTHERAPY [Concomitant]
     Indication: SQUAMOUS CELL CARCINOMA
  4. FLUOROURACIL [Suspect]
     Indication: SQUAMOUS CELL CARCINOMA

REACTIONS (1)
  - ACUTE ABDOMEN [None]
